FAERS Safety Report 17399174 (Version 1)
Quarter: 2020Q1

REPORT INFORMATION
  Report Type: Report from Study
  Country: None (occurrence: US)
  Receive Date: 20200210
  Receipt Date: 20200210
  Transmission Date: 20200409
  Serious: Yes (Other)
  Sender: FDA-Public Use
  Company Number: US-ABBVIE-20K-163-3267117-00

PATIENT
  Sex: Male

DRUGS (1)
  1. VENCLEXTA [Suspect]
     Active Substance: VENETOCLAX
     Indication: ACUTE MYELOID LEUKAEMIA RECURRENT
     Route: 048
     Dates: start: 20190914

REACTIONS (12)
  - White blood cell count decreased [Unknown]
  - Protein total decreased [Unknown]
  - Haemoglobin decreased [Unknown]
  - Haematocrit decreased [Unknown]
  - Blood glucose increased [Unknown]
  - Myelofibrosis [Unknown]
  - Acute myeloid leukaemia [Unknown]
  - Carbon dioxide abnormal [Unknown]
  - International normalised ratio increased [Unknown]
  - Blood calcium decreased [Unknown]
  - Pancytopenia [Unknown]
  - Platelet count decreased [Unknown]
